FAERS Safety Report 9467936 (Version 1)
Quarter: 2013Q3

REPORT INFORMATION
  Report Type: Spontaneous
  Country: US (occurrence: US)
  Receive Date: 20130821
  Receipt Date: 20130821
  Transmission Date: 20140515
  Serious: No
  Sender: FDA-Public Use
  Company Number: US-BAYER-2013-100685

PATIENT
  Age: 64 Year
  Sex: Female
  Weight: 58.96 kg

DRUGS (2)
  1. ALEVE TABLET [Suspect]
     Dosage: 1 DF, BID
     Route: 048
  2. ZOCOR [Concomitant]

REACTIONS (1)
  - Local swelling [None]
